FAERS Safety Report 4623328-9 (Version None)
Quarter: 2005Q1

REPORT INFORMATION
  Report Type: 
  Country: None (occurrence: None)
  Receive Date: 20050330
  Receipt Date: 20050324
  Transmission Date: 20050727
  Serious: Yes (Life-Threatening, Disabling)
  Sender: FDA-Public Use
  Company Number: US-MERCK-0503USA04462

PATIENT
  Age: 58 Year
  Sex: Female

DRUGS (5)
  1. FOSAMAX [Suspect]
     Indication: OSTEOPOROSIS
     Route: 048
     Dates: start: 19970101, end: 20050315
  2. PROTONIX [Concomitant]
     Route: 065
  3. MOBIC [Concomitant]
     Route: 065
  4. EVISTA [Concomitant]
     Route: 065
  5. LEVOXYL [Concomitant]
     Route: 065

REACTIONS (4)
  - ACCIDENT [None]
  - FROSTBITE [None]
  - OEDEMA PERIPHERAL [None]
  - SENSATION OF FOREIGN BODY [None]
